FAERS Safety Report 13507861 (Version 1)
Quarter: 2017Q2

REPORT INFORMATION
  Report Type: Spontaneous
  Country: US (occurrence: US)
  Receive Date: 20170503
  Receipt Date: 20170503
  Transmission Date: 20170830
  Serious: Yes (Other)
  Sender: FDA-Public Use
  Company Number: US-PFIZER INC-2017084047

PATIENT
  Sex: Female

DRUGS (2)
  1. FASLODEX [Suspect]
     Active Substance: FULVESTRANT
     Dosage: UNK
     Dates: end: 20170126
  2. IBRANCE [Suspect]
     Active Substance: PALBOCICLIB
     Indication: BREAST CANCER FEMALE
     Dosage: 125 MG, CYCLIC (DAILY FOR 21 DAY, 7 DAYS OFF)
     Route: 048
     Dates: start: 20161104, end: 20170126

REACTIONS (1)
  - Neoplasm progression [Unknown]

NARRATIVE: CASE EVENT DATE: 20170126
